FAERS Safety Report 23610958 (Version 2)
Quarter: 2025Q1

REPORT INFORMATION
  Report Type: Spontaneous
  Country: US (occurrence: US)
  Receive Date: 20240308
  Receipt Date: 20250306
  Transmission Date: 20250408
  Serious: No
  Sender: RECORDATI
  Company Number: US-RECORDATI-2023003191

PATIENT

DRUGS (2)
  1. ISTURISA [Suspect]
     Active Substance: OSILODROSTAT PHOSPHATE
     Indication: Product used for unknown indication
     Dosage: 1 MILLIGRAM, BID
     Route: 048
  2. ISTURISA [Suspect]
     Active Substance: OSILODROSTAT PHOSPHATE
     Dosage: 2 IN THE AM AND 1 IN THE EVENING
     Route: 048

REACTIONS (5)
  - Balance disorder [Unknown]
  - Limb discomfort [Unknown]
  - Asthenia [Unknown]
  - Back pain [Unknown]
  - Diarrhoea [Unknown]
